FAERS Safety Report 5210465-3 (Version None)
Quarter: 2006Q4

REPORT INFORMATION
  Report Type: 
  Country: None (occurrence: None)
  Receive Date: 20061106
  Receipt Date: 20060530
  Transmission Date: 20070319
  Serious: Yes (Other)
  Sender: FDA-Public Use
  Company Number: US-JNJFOC-20060403374

PATIENT
  Age: 43 Year
  Sex: Male
  Weight: 83.9154 kg

DRUGS (23)
  1. MOTRIN [Suspect]
     Indication: DRUG USE FOR UNKNOWN INDICATION
     Dosage: 800 MG TID PRN
     Dates: start: 20050101, end: 20060207
  2. HYDROCHLOROTHIAZIDE [Suspect]
     Indication: HYPERTENSION
     Dosage: 12.5 MG, 1 IN 1 DAY, ORAL
     Route: 048
  3. REBETOL [Concomitant]
  4. PEG-INTRON [Concomitant]
  5. AGGRENOX (ASASANTIN) SUSTAINED RELEASE TABLETS [Concomitant]
  6. AMITRYPTALINE (AMITRIPTYLINE) TABLETS [Concomitant]
  7. AMMONIUM LACTATE, (AMMONIUM LACTATE) LOTION [Concomitant]
  8. ACETAMINOPHEN AND BUTALBITAL AND CAFFEINE [Concomitant]
  9. AQUAPHOR (AQUAPHOR) OINTMENT [Concomitant]
  10. BUPROPION HYDROCHLORIDE [Concomitant]
  11. CHOLESTYRAMINE RESIN (COLESTYRAMINE) POWDER [Concomitant]
  12. CLOBETASOL PROPIONATE (CLOBETASOL PROPIONATE) OINTMENT [Concomitant]
  13. CLOTRIMAZOLE (CLOTRIMAZOLE) CREAM [Concomitant]
  14. FISH OIL (FISH OIL) CAPSULE [Concomitant]
  15. CORDAN (FENDILINE HYDROCHLORIDE) TAPE [Concomitant]
  16. HYDROXYZINE PAMOATE (HYDROXYZINE EMBONATE) CAPSULE [Concomitant]
  17. LEVOBNOLOL HYDROCHLORIDE (LEVOBUNOLOL HYDROCHLORIDE) [Concomitant]
  18. METFORMIN HCL [Concomitant]
  19. MULTIVITAMIN [Concomitant]
  20. OMEPRAZOLE SUSTAINED RELEASE (OMEPRAZOLE) [Concomitant]
  21. SILDENAFIL CITRATE (SILDENAFIL CITRATE) TABLETS [Concomitant]
  22. SIMVASTATIN [Concomitant]
  23. TERBINAFINE HYDROCHLORIDE 1% (TERBINAFINE HYDROCHLORIDE) [Concomitant]

REACTIONS (1)
  - RENAL FAILURE ACUTE [None]
